FAERS Safety Report 9440428 (Version 2)
Quarter: 2013Q3

REPORT INFORMATION
  Report Type: Spontaneous
  Country: JP (occurrence: JP)
  Receive Date: 20130730
  Receipt Date: 20130813
  Transmission Date: 20140515
  Serious: Yes (Hospitalization)
  Sender: FDA-Public Use
  Company Number: TCI2012A07501

PATIENT
  Age: 70 Year
  Sex: Male

DRUGS (9)
  1. NESINA [Suspect]
     Indication: DIABETES MELLITUS
     Route: 048
     Dates: start: 20121025, end: 20121106
  2. NEODOPASTON [Suspect]
     Route: 048
  3. RIVOTRIL (CLONAZEPAM) [Concomitant]
  4. HARNAL (TAMSULOSIN HYDROCHLORIDE) [Concomitant]
  5. PROSTAL (CHLORMADINONE ACETATE) [Concomitant]
  6. UBRETID (DISTIGMINE BROMIDE) [Concomitant]
  7. BONALON (ALENDRONATE SODUIM) [Concomitant]
  8. EDIROL (ELDECALCITOL)(VITAMIN D AND ANALOGUES) [Concomitant]
  9. MOHRUS (KETOPROFEN) [Concomitant]

REACTIONS (1)
  - Ileus [None]
